FAERS Safety Report 11167785 (Version 1)
Quarter: 2015Q2

REPORT INFORMATION
  Report Type: Spontaneous
  Country: US (occurrence: None)
  Receive Date: 20150603
  Receipt Date: 20150603
  Transmission Date: 20150821
  Serious: Yes (Other)
  Sender: FDA-Public Use
  Company Number: COR_00302_2015

PATIENT
  Age: 71 Year
  Sex: Female

DRUGS (2)
  1. CARBOPLATIN. [Suspect]
     Active Substance: CARBOPLATIN
     Indication: UTERINE CANCER
     Dosage: (DF)
     Dates: start: 2010
  2. PACLITAXEL. [Suspect]
     Active Substance: PACLITAXEL
     Indication: UTERINE CANCER
     Dosage: (DF), (8 CYCLES)
     Dates: start: 2010

REACTIONS (14)
  - Dyspepsia [None]
  - Constipation [None]
  - Hyperhidrosis [None]
  - Nausea [None]
  - Fatigue [None]
  - Dyspnoea [None]
  - Diverticulitis [None]
  - Presyncope [None]
  - Polyuria [None]
  - Polydipsia [None]
  - Thrombophlebitis superficial [None]
  - Abdominal distension [None]
  - Palpitations [None]
  - Neuropathy peripheral [None]

NARRATIVE: CASE EVENT DATE: 2010
